FAERS Safety Report 24185737 (Version 1)
Quarter: 2024Q3

REPORT INFORMATION
  Report Type: Spontaneous
  Country: US (occurrence: US)
  Receive Date: 20240807
  Receipt Date: 20240807
  Transmission Date: 20241016
  Serious: Yes (Hospitalization)
  Sender: AVION PHARMACEUTICALS
  Company Number: US-ACELLA PHARMACEUTICALS, LLC-2024ALO00365

PATIENT
  Age: 32 Year
  Sex: Male

DRUGS (2)
  1. DEXTROMETHORPHAN [Suspect]
     Active Substance: DEXTROMETHORPHAN
     Indication: Drug abuse
     Dosage: UNK
  2. DEXTROMETHORPHAN [Suspect]
     Active Substance: DEXTROMETHORPHAN
     Dosage: CHRONICALLY ESCALATING DOSES

REACTIONS (4)
  - Drug abuse [Unknown]
  - Toxicity to various agents [Unknown]
  - Hyperchloraemia [Unknown]
  - Serotonin syndrome [Unknown]
